FAERS Safety Report 15155679 (Version 1)
Quarter: 2018Q3

REPORT INFORMATION
  Report Type: Spontaneous
  Country: IT (occurrence: IT)
  Receive Date: 20180717
  Receipt Date: 20180717
  Transmission Date: 20181010
  Serious: Yes (Other)
  Sender: FDA-Public Use
  Company Number: IT-MYLANLABS-2018M1050808

PATIENT
  Age: 50 Year
  Sex: Male

DRUGS (2)
  1. CISPLATIN. [Suspect]
     Active Substance: CISPLATIN
     Indication: PSEUDOMYXOMA PERITONEI
     Dosage: 100 MG/M2, AT A TEMPERATURE OF 41.5 DEGREES
     Route: 033
  2. MITOMYCIN. [Suspect]
     Active Substance: MITOMYCIN
     Indication: PSEUDOMYXOMA PERITONEI
     Dosage: 16 MG/M2, AT A TEMPERATURE OF 41.5 DEGREES
     Route: 033

REACTIONS (2)
  - Wrong technique in product usage process [Recovered/Resolved]
  - Atrial fibrillation [Unknown]
